FAERS Safety Report 7440864-0 (Version None)
Quarter: 2011Q2

REPORT INFORMATION
  Report Type: 
  Country: None (occurrence: None)
  Receive Date: 20110427
  Receipt Date: 20110415
  Transmission Date: 20111010
  Serious: Yes (Other)
  Sender: FDA-Public Use
  Company Number: US-BAYER-2011-035775

PATIENT
  Age: 30 Year
  Sex: Female

DRUGS (2)
  1. OCELLA [Suspect]
     Dosage: UNK
     Dates: start: 20090101, end: 20091201
  2. YASMIN [Suspect]
     Dosage: UNK
     Dates: start: 20040101, end: 20090101

REACTIONS (2)
  - CHOLECYSTECTOMY [None]
  - INJURY [None]
